FAERS Safety Report 4675883-0 (Version None)
Quarter: 2005Q2

REPORT INFORMATION
  Report Type: 
  Country: None (occurrence: None)
  Receive Date: 20050526
  Receipt Date: 20050526
  Transmission Date: 20051028
  Serious: Yes (Hospitalization)
  Sender: FDA-Public Use
  Company Number: None

PATIENT
  Age: 49 Year
  Sex: Male
  Weight: 119 kg

DRUGS (14)
  1. ADRIAMYCIN PFS [Suspect]
     Indication: HODGKIN'S DISEASE
     Dosage: 19 MG/M^2  IV/DAYS 1, 15   (CYCLE 6)
     Route: 042
     Dates: start: 20050516
  2. BLEOMYCIN [Suspect]
     Indication: HODGKIN'S DISEASE
     Dosage: 10 MG/M^2   IV/ DAYS 1, 15   (CYCLE 6)
     Route: 042
     Dates: start: 20050516
  3. VINBLASTINE [Suspect]
     Indication: HODGKIN'S DISEASE
     Dosage: 4.5 MG/M^2   IV/ DAYS 1, 15   (CYCLE 6)
     Route: 042
     Dates: start: 20050516
  4. DACARBAZINE [Suspect]
     Indication: HODGKIN'S DISEASE
     Dosage: 375 MG/M^2   IV/DAYS 1, 15  (CYCLE 6)
     Route: 042
     Dates: start: 20050516
  5. LOVENOX [Concomitant]
  6. COUMADIN [Concomitant]
  7. LEXAPRO [Concomitant]
  8. ISO-BID [Concomitant]
  9. LOPRESSOR [Concomitant]
  10. NITROGLYCERIN [Concomitant]
  11. ACTOS [Concomitant]
  12. GRISEOFULVIN [Concomitant]
  13. FLEXERIL [Concomitant]
  14. NEUPOGEN [Concomitant]

REACTIONS (5)
  - OEDEMA PERIPHERAL [None]
  - OXYGEN SATURATION DECREASED [None]
  - PULMONARY EMBOLISM [None]
  - ROAD TRAFFIC ACCIDENT [None]
  - THROMBOSIS [None]
